FAERS Safety Report 9826490 (Version 1)
Quarter: 2014Q1

REPORT INFORMATION
  Report Type: Spontaneous
  Country: US (occurrence: US)
  Receive Date: 20140117
  Receipt Date: 20140117
  Transmission Date: 20141002
  Serious: No
  Sender: FDA-Public Use
  Company Number: US-BIOGENIDEC-2014BI001080

PATIENT
  Age: 42 Year
  Sex: Female

DRUGS (1)
  1. TECFIDERA [Suspect]
     Indication: PRODUCT USED FOR UNKNOWN INDICATION
     Route: 048
     Dates: start: 201307

REACTIONS (6)
  - Gastric disorder [Unknown]
  - Flushing [Unknown]
  - Pruritus [Unknown]
  - Rash [Unknown]
  - Gastroenteritis viral [Unknown]
  - Dyspepsia [Unknown]
